FAERS Safety Report 5351352-X (Version None)
Quarter: 2007Q2

REPORT INFORMATION
  Report Type: 
  Country: None (occurrence: None)
  Receive Date: 20070521
  Receipt Date: 20070413
  Transmission Date: 20071010
  Serious: No
  Sender: FDA-Public Use
  Company Number: WAES 0704USA03679

PATIENT
  Age: 37 Year
  Sex: Female
  Weight: 114.3065 kg

DRUGS (7)
  1. JANUVIA [Suspect]
     Indication: DIABETES MELLITUS NON-INSULIN-DEPENDENT
     Dosage: PO
     Route: 048
     Dates: start: 20070207, end: 20070407
  2. JANUVIA [Suspect]
     Indication: DIABETES MELLITUS NON-INSULIN-DEPENDENT
     Dosage: PO
     Route: 048
     Dates: start: 20070401
  3. LIPITOR [Concomitant]
  4. TRICOR [Concomitant]
  5. YASMIN [Concomitant]
  6. ZETIA [Concomitant]
  7. METFORMIN [Concomitant]

REACTIONS (1)
  - NAUSEA [None]
